FAERS Safety Report 9378613 (Version 1)
Quarter: 2013Q2

REPORT INFORMATION
  Report Type: Spontaneous
  Country: None (occurrence: None)
  Receive Date: 20130626
  Receipt Date: 20130626
  Transmission Date: 20140414
  Serious: Yes (Other)
  Sender: FDA-Public Use
  Company Number: 2013/123

PATIENT
  Age: 1 Day
  Sex: Female
  Weight: 3.19 kg

DRUGS (4)
  1. LEVETIRACETAM (NO PREF. NAME) [Suspect]
  2. LAMOTRIGINE (NO PREF. NAME) [Concomitant]
  3. VALPROATE (NO PREF. NAME) [Concomitant]
  4. CLOBAZAM (NO PREF. NAME) [Concomitant]

REACTIONS (3)
  - Hypoglycaemia neonatal [None]
  - Maternal drugs affecting foetus [None]
  - Hypotonia neonatal [None]
